FAERS Safety Report 7760238-2 (Version None)
Quarter: 2011Q3

REPORT INFORMATION
  Report Type: 
  Country: None (occurrence: None)
  Receive Date: 20110919
  Receipt Date: 20110914
  Transmission Date: 20111222
  Serious: Yes (Hospitalization)
  Sender: FDA-Public Use
  Company Number: US-GLAXOSMITHKLINE-A0944990A

PATIENT
  Age: 76 Year
  Sex: Female
  Weight: 107.9 kg

DRUGS (2)
  1. PAZOPANIB [Suspect]
     Indication: THYROID CANCER
     Dosage: 800MG PER DAY
     Route: 048
     Dates: start: 20110304
  2. VALSARTAN/HYDROCHLOROTHIAZIDE [Suspect]

REACTIONS (1)
  - HYPONATRAEMIA [None]
